FAERS Safety Report 17661309 (Version 1)
Quarter: 2020Q2

REPORT INFORMATION
  Report Type: Spontaneous
  Country: US (occurrence: US)
  Receive Date: 20200411
  Receipt Date: 20200411
  Transmission Date: 20200713
  Serious: Yes (Life-Threatening, Hospitalization, Disabling)
  Sender: FDA-Public Use
  Company Number: None

PATIENT
  Age: 37 Year
  Sex: Female
  Weight: 59.88 kg

DRUGS (2)
  1. LABETOLOL [Concomitant]
     Active Substance: LABETALOL HYDROCHLORIDE
  2. KYLEENA [Suspect]
     Active Substance: LEVONORGESTREL
     Dates: start: 20181101, end: 20200411

REACTIONS (1)
  - Ectopic pregnancy with contraceptive device [None]
